FAERS Safety Report 20690391 (Version 3)
Quarter: 2022Q2

REPORT INFORMATION
  Report Type: Spontaneous
  Country: GB (occurrence: GB)
  Receive Date: 20220408
  Receipt Date: 20220509
  Transmission Date: 20220721
  Serious: Yes (Death, Life-Threatening, Hospitalization, Disabling, Other)
  Sender: FDA-Public Use
  Company Number: GB-TEVA-2022-GB-2025957

PATIENT
  Age: 76 Year
  Sex: Male
  Weight: 69 kg

DRUGS (27)
  1. ALFACALCIDOL [Suspect]
     Active Substance: ALFACALCIDOL
     Indication: Product used for unknown indication
     Dosage: 500 NANOGRAM DAILY;
     Route: 065
  2. OMEPRAZOLE [Suspect]
     Active Substance: OMEPRAZOLE
     Indication: Product used for unknown indication
     Route: 065
  3. OMEPRAZOLE [Suspect]
     Active Substance: OMEPRAZOLE
     Indication: Duodenal ulcer
     Dosage: 20 MILLIGRAM DAILY; OMEPRAZOLE CHEMO IBERICA 20 MG DAILY
     Route: 048
  4. DOXYCYCLINE [Suspect]
     Active Substance: DOXYCYCLINE
     Route: 065
  5. HYDROCORTISONE [Suspect]
     Active Substance: HYDROCORTISONE
     Route: 065
  6. BISOPROLOL [Suspect]
     Active Substance: BISOPROLOL
     Route: 065
  7. DEXTROSE [Suspect]
     Active Substance: DEXTROSE
     Route: 065
  8. CEFUROXIME [Suspect]
     Active Substance: CEFUROXIME
     Route: 065
  9. SENNOSIDES A AND B [Suspect]
     Active Substance: SENNOSIDES A AND B
     Route: 065
  10. NITROGLYCERIN [Suspect]
     Active Substance: NITROGLYCERIN
     Route: 065
  11. CLARITHROMYCIN [Suspect]
     Active Substance: CLARITHROMYCIN
     Indication: Pneumonia
     Dosage: 250 MILLIGRAM DAILY; 500 MILLIGRAM, QOD
     Route: 042
  12. TACROLIMUS [Interacting]
     Active Substance: TACROLIMUS
     Dosage: 1.5 MILLIGRAM DAILY;
     Route: 065
  13. PREDNISOLONE [Concomitant]
     Active Substance: PREDNISOLONE
     Dosage: INCREASE PREDNISOLONE TO 10 MG FOR 5 DAYS
     Route: 065
  14. EPLERENONE [Concomitant]
     Active Substance: EPLERENONE
     Dosage: 25 MILLIGRAM DAILY; EPLERENONE 25MG OM PO O/A
     Route: 048
  15. NITROGLYCERIN [Concomitant]
     Active Substance: NITROGLYCERIN
     Dosage: GTN SPRAY
     Route: 065
  16. GLICLAZIDE [Concomitant]
     Active Substance: GLICLAZIDE
     Dosage: 40 MILLIGRAM DAILY; GLICLAZIDE 40MG OM PO O/A
     Route: 048
  17. FUROSEMIDE [Concomitant]
     Active Substance: FUROSEMIDE
     Dosage: 80 MILLIGRAM DAILY; FUROSEMIDE 80MG OM PO O/A
     Route: 048
  18. ALFACALCIDOL [Concomitant]
     Active Substance: ALFACALCIDOL
     Dosage: 500 NANOGRAM DAILY; ALFACALCIDOL 500NG OD PO O/A
     Route: 065
  19. CHOLECALCIFEROL [Concomitant]
     Active Substance: CHOLECALCIFEROL
     Dosage: 20 NANOGRAM DAILY; CALCIUM CARBONATE + COLECALCIFEROL 20NG DAILY
     Route: 048
  20. SENNA [Concomitant]
     Active Substance: SENNA LEAF\SENNOSIDES\SENNOSIDES A AND B
     Dosage: 15 MILLIGRAM DAILY; SENNA 15MG ON PO O/A
     Route: 048
  21. BETAHISTINE [Concomitant]
     Active Substance: BETAHISTINE
     Dosage: 8 MILLIGRAM DAILY; BETAHISTINE 8MG OM PO
     Route: 065
  22. doxycicline [Concomitant]
     Route: 065
  23. DEXTROSE [Concomitant]
     Active Substance: DEXTROSE
     Route: 065
  24. ALBUTEROL [Concomitant]
     Active Substance: ALBUTEROL
     Route: 065
  25. ALLOPURINOL [Concomitant]
     Active Substance: ALLOPURINOL
     Dosage: 100 MILLIGRAM DAILY; ALLOPURINOL 100MG OD PO O/A
     Route: 048
  26. GLUCAGON [Concomitant]
     Active Substance: GLUCAGON
     Route: 030
  27. HYDROCORTISONE [Concomitant]
     Active Substance: HYDROCORTISONE
     Dosage: 150 MILLIGRAM DAILY; HYDROCORTISONE IV 50 MG THREE TIMES A DAY
     Route: 042

REACTIONS (34)
  - Oesophageal carcinoma [Fatal]
  - Myocardial ischaemia [Fatal]
  - Drug interaction [Fatal]
  - Pneumonia [Fatal]
  - Acute kidney injury [Fatal]
  - Cardiac failure congestive [Fatal]
  - Labelled drug-drug interaction medication error [Fatal]
  - Superinfection [Fatal]
  - Toxicity to various agents [Fatal]
  - Immunosuppressant drug level increased [Fatal]
  - Lung consolidation [Fatal]
  - Soft tissue mass [Fatal]
  - Hypoglycaemia [Fatal]
  - Rales [Fatal]
  - Inflammatory marker increased [Fatal]
  - Productive cough [Fatal]
  - Swelling [Fatal]
  - Dysphagia [Fatal]
  - Sepsis [Fatal]
  - Multimorbidity [Fatal]
  - Rash [Fatal]
  - Malaise [Fatal]
  - Transplant failure [Fatal]
  - Pyrexia [Unknown]
  - Cough [Unknown]
  - Renal impairment [Unknown]
  - Oesophageal perforation [Not Recovered/Not Resolved]
  - Pleural effusion [Unknown]
  - Haemoptysis [Unknown]
  - Drug level increased [Recovered/Resolved with Sequelae]
  - Ascites [Unknown]
  - Cardiomegaly [Unknown]
  - Dyspnoea [Unknown]
  - Lower respiratory tract infection [Unknown]

NARRATIVE: CASE EVENT DATE: 20180118
